FAERS Safety Report 5632316-5 (Version None)
Quarter: 2008Q1

REPORT INFORMATION
  Report Type: 
  Country: None (occurrence: None)
  Receive Date: 20080131
  Receipt Date: 20071113
  Transmission Date: 20080703
  Serious: No
  Sender: FDA-Public Use
  Company Number: 163-21880-07100235

PATIENT
  Age: 68 Year
  Sex: Female

DRUGS (10)
  1. REVLIMID [Suspect]
     Indication: MULTIPLE MYELOMA
     Dosage: 25 MG, DAILY FOR 21 DAYS, ORAL
     Route: 048
     Dates: start: 20070907
  2. ASPIRIN [Concomitant]
  3. VASOTEC [Concomitant]
  4. ATENOLOL [Concomitant]
  5. DECADRON [Concomitant]
  6. LASIX [Concomitant]
  7. ASCORBIC ACID [Concomitant]
  8. VITAMIN D [Concomitant]
  9. FLAXSEED OIL (LINSEED OIL) (TABLETS) [Concomitant]
  10. MULTIVITAMINS (MULTIVITAMINS) (TABLETS) [Concomitant]

REACTIONS (2)
  - ABDOMINAL DISCOMFORT [None]
  - DECREASED APPETITE [None]
